FAERS Safety Report 7812969-3 (Version None)
Quarter: 2011Q4

REPORT INFORMATION
  Report Type: 
  Country: None (occurrence: None)
  Receive Date: 20111013
  Receipt Date: 20111010
  Transmission Date: 20120403
  Serious: Yes (Hospitalization)
  Sender: FDA-Public Use
  Company Number: FR-ABBOTT-11P-056-0859164-00

PATIENT
  Sex: Female

DRUGS (5)
  1. PAROXETINE HCL [Concomitant]
     Indication: PRODUCT USED FOR UNKNOWN INDICATION
  2. ACETAMINOPHEN [Concomitant]
     Indication: PRODUCT USED FOR UNKNOWN INDICATION
     Dosage: SIX TIMES DAILY IF NEEDED
  3. ALPRAZOLAM [Concomitant]
     Indication: PRODUCT USED FOR UNKNOWN INDICATION
     Dosage: THREE TIMES DAILY IF NEEDED
  4. TRAMADOL HCL [Concomitant]
     Indication: PRODUCT USED FOR UNKNOWN INDICATION
  5. HUMIRA [Suspect]
     Indication: PRODUCT USED FOR UNKNOWN INDICATION

REACTIONS (9)
  - EAR INFECTION [None]
  - PHARYNGITIS [None]
  - MENINGOCOCCAL INFECTION [None]
  - PYREXIA [None]
  - PNEUMOCOCCAL INFECTION [None]
  - MENINGITIS BACTERIAL [None]
  - PNEUMONIA [None]
  - RHINITIS [None]
  - HEADACHE [None]
